FAERS Safety Report 4764461-0 (Version None)
Quarter: 2005Q3

REPORT INFORMATION
  Report Type: 
  Country: None (occurrence: None)
  Receive Date: 20050909
  Receipt Date: 20050831
  Transmission Date: 20060218
  Serious: Yes (Hospitalization)
  Sender: FDA-Public Use
  Company Number: PHEH2005US09786

PATIENT
  Age: 52 Year
  Sex: Female

DRUGS (1)
  1. ZELNORM [Suspect]
     Indication: IRRITABLE BOWEL SYNDROME
     Dosage: UNK, QD
     Route: 048
     Dates: start: 20040801

REACTIONS (7)
  - ABDOMINAL PAIN [None]
  - BACK PAIN [None]
  - DIARRHOEA [None]
  - IRRITABLE BOWEL SYNDROME [None]
  - NAUSEA [None]
  - POSTOPERATIVE ADHESION [None]
  - SURGERY [None]
